FAERS Safety Report 11562568 (Version 2)
Quarter: 2015Q4

REPORT INFORMATION
  Report Type: Spontaneous
  Country: US (occurrence: US)
  Receive Date: 20150928
  Receipt Date: 20151020
  Transmission Date: 20160304
  Serious: No
  Sender: FDA-Public Use
  Company Number: US-GLAXOSMITHKLINE-US2015136480

PATIENT
  Age: 65 Year
  Sex: Male

DRUGS (2)
  1. NICODERM CQ [Suspect]
     Active Substance: NICOTINE
     Dosage: 14 MG, UNK
     Dates: start: 20150923
  2. NICODERM CQ [Suspect]
     Active Substance: NICOTINE
     Indication: SMOKING CESSATION THERAPY
     Dosage: 14 MG, UNK
     Dates: start: 20150919

REACTIONS (4)
  - Restlessness [Unknown]
  - Palpitations [Recovering/Resolving]
  - Abnormal dreams [Recovered/Resolved]
  - Hypopnoea [Recovering/Resolving]

NARRATIVE: CASE EVENT DATE: 20150919
